FAERS Safety Report 6379718-X (Version None)
Quarter: 2009Q3

REPORT INFORMATION
  Report Type: 
  Country: None (occurrence: None)
  Receive Date: 20090928
  Receipt Date: 20090921
  Transmission Date: 20100115
  Serious: Yes (Disabling)
  Sender: FDA-Public Use
  Company Number: AU-AVENTIS-200917505GDDC

PATIENT
  Age: 75 Year
  Sex: Female

DRUGS (8)
  1. LANTUS [Suspect]
     Route: 058
     Dates: start: 20050101
  2. AUTOPEN INSULIN INJECTION PEN [Suspect]
  3. ASASANTIN                          /00580301/ [Concomitant]
  4. ATACAND [Concomitant]
     Indication: HYPERTENSION
     Route: 048
     Dates: start: 20060101
  5. COVERSYL                           /00790701/ [Concomitant]
     Indication: HYPERTENSION
     Route: 048
     Dates: start: 20030101
  6. LIPITOR [Concomitant]
     Route: 048
  7. OROXINE [Concomitant]
     Indication: HYPOTHYROIDISM
     Route: 048
  8. NEO-CYTAMEN [Concomitant]
     Indication: VITAMIN B12 DEFICIENCY
     Route: 030

REACTIONS (3)
  - INGUINAL HERNIA [None]
  - OSTEOARTHRITIS [None]
  - PAIN IN EXTREMITY [None]
